FAERS Safety Report 9127331 (Version 1)
Quarter: 2013Q1

REPORT INFORMATION
  Report Type: Spontaneous
  Country: CA (occurrence: CA)
  Receive Date: 20130122
  Receipt Date: 20130122
  Transmission Date: 20140127
  Serious: Yes (Hospitalization, Other)
  Sender: FDA-Public Use
  Company Number: CA-US-EMD SERONO, INC.-7188332

PATIENT
  Age: 34 Year
  Sex: Female
  Weight: 51 kg

DRUGS (2)
  1. GONAL-F [Suspect]
     Indication: PRODUCT USED FOR UNKNOWN INDICATION
     Dosage: 225.0 UNITS LIQUID
     Route: 030
  2. MENOPUR [Suspect]
     Indication: PRODUCT USED FOR UNKNOWN INDICATION
     Dosage: 75.0 UNITS
     Route: 058

REACTIONS (7)
  - Back pain [Unknown]
  - Haematocrit increased [Unknown]
  - Haemoconcentration [Unknown]
  - Haemoglobin increased [Unknown]
  - Suprapubic pain [Unknown]
  - Ascites [Unknown]
  - Ovarian hyperstimulation syndrome [Unknown]
